FAERS Safety Report 13757810 (Version 4)
Quarter: 2024Q3

REPORT INFORMATION
  Report Type: Report from Study
  Country: CA (occurrence: CA)
  Receive Date: 20170717
  Receipt Date: 20240917
  Transmission Date: 20241017
  Serious: Yes (Other)
  Sender: ROCHE
  Company Number: CA-002147023-PHHY2017CA102020

PATIENT
  Age: 40 Year
  Sex: Female

DRUGS (7)
  1. XOLAIR [Suspect]
     Active Substance: OMALIZUMAB
     Indication: Asthma
     Route: 058
     Dates: start: 20131101
  2. XOLAIR [Suspect]
     Active Substance: OMALIZUMAB
     Route: 058
     Dates: start: 20151216
  3. XOLAIR [Suspect]
     Active Substance: OMALIZUMAB
     Route: 058
  4. SYMBICORT [Concomitant]
     Active Substance: BUDESONIDE\FORMOTEROL FUMARATE DIHYDRATE
     Indication: Product used for unknown indication
     Dosage: 2 DOSAGE FORM, BID
  5. SYMBICORT [Concomitant]
     Active Substance: BUDESONIDE\FORMOTEROL FUMARATE DIHYDRATE
     Dosage: 200-6 MCG/ACTUATION 2 INHALATIONS 2 TIMES DAILY, PRN MAY USE UP TO 10 INHALATIONS DAILY TOTAL MAXIMU
     Route: 050
  6. RUPATADINE FUMARATE [Concomitant]
     Active Substance: RUPATADINE FUMARATE
     Indication: Product used for unknown indication
     Dosage: 10 MG 1 TABLET 1 TIME DAILY MAY TAKE UP TO 4 TABLETS DAILY IF NEEDED
     Route: 065
  7. RYALTRIS [Concomitant]
     Active Substance: MOMETASONE FUROATE MONOHYDRATE\OLOPATADINE HYDROCHLORIDE

REACTIONS (13)
  - Herpes zoster oticus [Unknown]
  - Ear swelling [Not Recovered/Not Resolved]
  - Swelling [Unknown]
  - Asthma [Unknown]
  - COVID-19 [Recovered/Resolved]
  - Chest discomfort [Unknown]
  - Angioedema [Unknown]
  - Erythema [Unknown]
  - Ear pain [Unknown]
  - Urticaria [Unknown]
  - Product dose omission issue [Unknown]
  - Drug ineffective [Unknown]
  - Hypersensitivity [Unknown]

NARRATIVE: CASE EVENT DATE: 20220918
